FAERS Safety Report 4893843-1 (Version None)
Quarter: 2006Q1

REPORT INFORMATION
  Report Type: 
  Country: None (occurrence: None)
  Receive Date: 20060127
  Receipt Date: 20041208
  Transmission Date: 20060701
  Serious: No
  Sender: FDA-Public Use
  Company Number: US-GLAXOSMITHKLINE-A0536606A

PATIENT
  Age: 58 Year
  Sex: Female

DRUGS (5)
  1. WELLBUTRIN [Suspect]
     Indication: DEPRESSION
     Dosage: 75MG UNKNOWN
     Route: 048
  2. FEMHRT [Concomitant]
  3. DHEA [Concomitant]
  4. RESTORIL [Concomitant]
  5. MELATONIN [Concomitant]

REACTIONS (1)
  - EAR DISCOMFORT [None]
